FAERS Safety Report 8107063-0 (Version None)
Quarter: 2012Q1

REPORT INFORMATION
  Report Type: 
  Country: None (occurrence: None)
  Receive Date: 20120202
  Receipt Date: 20120130
  Transmission Date: 20120608
  Serious: Yes (Other)
  Sender: FDA-Public Use
  Company Number: DE-PFIZER INC-2012024365

PATIENT
  Age: 76 Year
  Sex: Female
  Weight: 59 kg

DRUGS (7)
  1. ACTONEL PLUS CALCIUM D [Concomitant]
     Indication: OSTEOPOROSIS
     Dosage: 1 DF, 1X/DAY, 35 MG RISEDRONATE + 1000 MG CALCIUM + 880 IU VIT. D
     Dates: start: 20040101, end: 20090505
  2. PREDNISOLONE [Concomitant]
     Dosage: 5 MG, 1X/DAY
     Dates: start: 20090527
  3. RAMIPRIL [Suspect]
     Indication: HYPERTENSION
     Dosage: 2.5 MG, 1X/DAY
     Route: 048
     Dates: start: 20000101
  4. PREDNISOLONE [Concomitant]
     Dosage: 25 MG, UNK
     Dates: start: 20090527, end: 20090101
  5. PREDNISOLONE [Concomitant]
     Indication: RHEUMATOID ARTHRITIS
     Dosage: 5 MG, UNK
     Route: 048
     Dates: start: 20020101, end: 20090519
  6. PREDNISOLONE [Concomitant]
     Dosage: 100 MG, UNK
     Dates: start: 20090520, end: 20090525
  7. PREDNISOLONE [Concomitant]
     Dosage: 50 MG, UNK
     Dates: start: 20090526, end: 20090526

REACTIONS (4)
  - CEREBROVASCULAR ACCIDENT [None]
  - DIVERTICULITIS [None]
  - TACHYARRHYTHMIA [None]
  - RESTLESSNESS [None]
